FAERS Safety Report 6201161 (Version 2)
Quarter: 2012Q4

REPORT INFORMATION
  Report Type: 
  Country: US (occurrence: US)
  Receive Date: 20061222
  Receipt Date: 20121210
  Transmission Date: 20130627
  Serious: Yes (Hospitalization)
  Sender: FDA-Public Use
  Company Number: US-JNJFOC-20061202754

PATIENT
  Age: 48 Year
  Sex: Male
  Weight: 71.67 kg

DRUGS (14)
  1. IBUPROFEN [Suspect]
     Indication: PRODUCT USED FOR UNKNOWN INDICATION
  2. TYLENOL [Suspect]
  3. TYLENOL [Suspect]
     Indication: PRODUCT USED FOR UNKNOWN INDICATION
  4. EXCEDRIN [Suspect]
     Indication: PRODUCT USED FOR UNKNOWN INDICATION
  5. UNSPECIFIED INGREDIENT [Suspect]
     Indication: PAIN IN JAW
     Dates: start: 20060630
  6. UNSPECIFIED [Suspect]
     Indication: SINUS HEADACHE
     Dates: start: 20060630
  7. BAYER ASPIRIN [Suspect]
     Indication: PAIN IN JAW
     Route: 048
     Dates: start: 20060625, end: 20060626
  8. BAYER ASPIRIN [Suspect]
     Indication: PAIN IN JAW
     Route: 048
     Dates: start: 20060630
  9. BAYER ASPIRIN [Suspect]
     Indication: PAIN IN JAW
     Route: 048
  10. BAYER ASPIRIN [Suspect]
     Indication: CHEST PAIN
     Route: 048
     Dates: start: 20060630
  11. BAYER ASPIRIN [Suspect]
     Indication: CHEST PAIN
     Route: 048
     Dates: start: 20060625, end: 20060626
  12. BAYER ASPIRIN [Suspect]
     Indication: CHEST PAIN
     Route: 048
  13. OMEGA 3 [Concomitant]
  14. CHONDROITIN 6-SULFATE\GLUCOSAMINE HYDROCHLORIDE [Concomitant]

REACTIONS (4)
  - Coronary artery disease [Recovered/Resolved]
  - Myocardial infarction [Recovered/Resolved]
  - Headache [None]
  - Ejection fraction decreased [None]
